FAERS Safety Report 13297619 (Version 3)
Quarter: 2017Q2

REPORT INFORMATION
  Report Type: Report from Study
  Country: GB (occurrence: GB)
  Receive Date: 20170306
  Receipt Date: 20170608
  Transmission Date: 20170830
  Serious: Yes (Hospitalization, Other)
  Sender: FDA-Public Use
  Company Number: GB-ROCHE-1901562

PATIENT
  Age: 32 Year
  Sex: Female
  Weight: 82 kg

DRUGS (1)
  1. TOCILIZUMAB [Suspect]
     Active Substance: TOCILIZUMAB
     Indication: RHEUMATOID ARTHRITIS
     Route: 058

REACTIONS (5)
  - Oesophagitis [Unknown]
  - Haematemesis [Unknown]
  - Gastritis [Unknown]
  - Mallory-Weiss syndrome [Unknown]
  - Oesophagitis [Unknown]

NARRATIVE: CASE EVENT DATE: 20170108
